FAERS Safety Report 9095468 (Version 1)
Quarter: 2013Q1

REPORT INFORMATION
  Report Type: Spontaneous
  Country: IT (occurrence: IT)
  Receive Date: 20130219
  Receipt Date: 20130219
  Transmission Date: 20140127
  Serious: Yes (Hospitalization)
  Sender: FDA-Public Use
  Company Number: PHHY2013IT015364

PATIENT
  Age: 66 Year
  Sex: Female

DRUGS (4)
  1. METHOTREXATE [Suspect]
     Indication: MULTIPLE SCLEROSIS
     Dosage: 7.5 MG, WEEKLY
     Route: 048
     Dates: start: 20110120, end: 20110220
  2. BETAFERON [Concomitant]
     Dosage: UNK UKN, UNK
     Dates: start: 20001015, end: 20041101
  3. AVONEX [Concomitant]
     Dosage: UNK UKN, UNK
     Dates: start: 20080330, end: 20100422
  4. MITOXANTRONE [Concomitant]
     Dosage: UNK UKN, UNK
     Dates: start: 20050309, end: 20070313

REACTIONS (1)
  - Breast mass [Not Recovered/Not Resolved]
